FAERS Safety Report 9401306 (Version 1)
Quarter: 2013Q3

REPORT INFORMATION
  Report Type: Report from Study
  Country: CA (occurrence: CA)
  Receive Date: 20130715
  Receipt Date: 20130715
  Transmission Date: 20140515
  Serious: Yes (Other)
  Sender: FDA-Public Use
  Company Number: CA-TEVA-418865USA

PATIENT
  Age: 67 Year
  Sex: Female

DRUGS (6)
  1. COPAXONE [Suspect]
     Indication: MULTIPLE SCLEROSIS
     Dates: start: 20081118, end: 201304
  2. VESICARE [Concomitant]
  3. FLUOXETINE [Concomitant]
  4. PANTOPRAZOLE [Concomitant]
  5. VITAMIN D [Concomitant]
  6. TYLENOL [Concomitant]

REACTIONS (1)
  - Choking [Unknown]
